FAERS Safety Report 6572952-5 (Version None)
Quarter: 2010Q1

REPORT INFORMATION
  Report Type: 
  Country: None (occurrence: None)
  Receive Date: 20100208
  Receipt Date: 20100129
  Transmission Date: 20100710
  Serious: Yes (Death, Hospitalization, Other)
  Sender: FDA-Public Use
  Company Number: US-BIOGENIDEC-2009BI033318

PATIENT
  Sex: Female

DRUGS (2)
  1. AVONEX [Suspect]
     Indication: MULTIPLE SCLEROSIS
     Route: 030
     Dates: start: 19960819
  2. COPAXONE [Concomitant]

REACTIONS (9)
  - ANOXIC ENCEPHALOPATHY [None]
  - CARDIO-RESPIRATORY ARREST [None]
  - COMA [None]
  - CONVULSION [None]
  - ENCEPHALOPATHY [None]
  - LEFT VENTRICULAR HYPERTROPHY [None]
  - MULTIPLE SCLEROSIS [None]
  - STATUS EPILEPTICUS [None]
  - TRICUSPID VALVE INCOMPETENCE [None]
